FAERS Safety Report 21572628 (Version 1)
Quarter: 2022Q4

REPORT INFORMATION
  Report Type: Spontaneous
  Country: US (occurrence: US)
  Receive Date: 20221109
  Receipt Date: 20221109
  Transmission Date: 20230113
  Serious: No
  Sender: FDA-Public Use
  Company Number: US-ORGANON-O2210USA002270

PATIENT
  Sex: Female

DRUGS (11)
  1. REMERON [Suspect]
     Active Substance: MIRTAZAPINE
     Indication: Cognitive disorder
     Dosage: UNK
  2. REMERON [Suspect]
     Active Substance: MIRTAZAPINE
     Indication: Psychotic symptom
  3. REMERON [Suspect]
     Active Substance: MIRTAZAPINE
     Indication: Dementia
  4. OLANZAPINE [Concomitant]
     Active Substance: OLANZAPINE
     Indication: Cognitive disorder
     Dosage: UNK
  5. OLANZAPINE [Concomitant]
     Active Substance: OLANZAPINE
     Indication: Psychotic symptom
  6. OLANZAPINE [Concomitant]
     Active Substance: OLANZAPINE
     Indication: Dementia
  7. RISPERIDONE [Concomitant]
     Active Substance: RISPERIDONE
     Indication: Cognitive disorder
     Dosage: UNK
  8. RISPERIDONE [Concomitant]
     Active Substance: RISPERIDONE
     Indication: Psychotic symptom
  9. RISPERIDONE [Concomitant]
     Active Substance: RISPERIDONE
     Indication: Dementia
  10. CEFTRIAXONE [Concomitant]
     Active Substance: CEFTRIAXONE
     Indication: Urinary tract infection
     Dosage: UNK
  11. RIVASTIGMINE [Concomitant]
     Active Substance: RIVASTIGMINE
     Indication: Dementia
     Dosage: UNK

REACTIONS (1)
  - Product use in unapproved indication [Unknown]
